FAERS Safety Report 10411332 (Version 1)
Quarter: 2014Q3

REPORT INFORMATION
  Report Type: Report from Study
  Country: ZA (occurrence: ZA)
  Receive Date: 20140826
  Receipt Date: 20140826
  Transmission Date: 20150326
  Serious: Yes (Hospitalization, Other)
  Sender: FDA-Public Use
  Company Number: ZA-BAYER-2014-088460

PATIENT
  Sex: Male

DRUGS (2)
  1. BETAFERON [Suspect]
     Active Substance: INTERFERON BETA-1B
     Indication: MULTIPLE SCLEROSIS
     Dosage: UNK
     Dates: start: 20111119
  2. BETAFERON [Suspect]
     Active Substance: INTERFERON BETA-1B
     Indication: MULTIPLE SCLEROSIS
     Dosage: UNK
     Dates: start: 1999, end: 201111

REACTIONS (13)
  - Cystitis [None]
  - Bladder dysfunction [None]
  - Urinary tract infection [None]
  - Injection site pain [Recovered/Resolved]
  - Injection site erythema [Recovered/Resolved]
  - Arrhythmia [None]
  - Injection site infection [None]
  - Cellulitis [Recovering/Resolving]
  - Abdominal pain [Recovering/Resolving]
  - Injection site infection [Recovered/Resolved]
  - Soft tissue injury [None]
  - Pain in extremity [None]
  - Injection site swelling [Recovered/Resolved]

NARRATIVE: CASE EVENT DATE: 2008
